FAERS Safety Report 8225634-8 (Version None)
Quarter: 2012Q1

REPORT INFORMATION
  Report Type: 
  Country: None (occurrence: None)
  Receive Date: 20120321
  Receipt Date: 20120315
  Transmission Date: 20120608
  Serious: Yes (Death)
  Sender: FDA-Public Use
  Company Number: US-ROXANE LABORATORIES, INC.-2012-RO-00870RO

PATIENT
  Age: 48 Year
  Sex: Female

DRUGS (4)
  1. OXYCODONE HCL [Suspect]
     Indication: BACK PAIN
  2. METHADONE HCL [Suspect]
     Indication: BACK PAIN
  3. HYDROCODONE BITARTRATE AND ACETAMINOPHEN [Suspect]
     Indication: BACK PAIN
  4. METHADONE HCL [Suspect]
     Indication: BREAKTHROUGH PAIN

REACTIONS (1)
  - ACCIDENTAL OVERDOSE [None]
